FAERS Safety Report 4616724-7 (Version None)
Quarter: 2005Q1

REPORT INFORMATION
  Report Type: 
  Country: None (occurrence: None)
  Receive Date: 20050321
  Receipt Date: 20050314
  Transmission Date: 20050727
  Serious: Yes (Disabling)
  Sender: FDA-Public Use
  Company Number: 2005AC00456

PATIENT
  Age: 52 Year
  Sex: Male
  Weight: 55 kg

DRUGS (2)
  1. LIDOCAINE [Suspect]
     Indication: ANAESTHESIA
     Dosage: 15 ML ONCE
  2. BUPIVACAINE [Suspect]
     Indication: ANAESTHESIA
     Dosage: 15 ML ONCE

REACTIONS (5)
  - BRACHIAL PLEXUS INJURY [None]
  - IATROGENIC INJURY [None]
  - MONOPLEGIA [None]
  - NEUROPATHY PERIPHERAL [None]
  - RADIAL NERVE PALSY [None]
